FAERS Safety Report 8555507-2 (Version None)
Quarter: 2012Q3

REPORT INFORMATION
  Report Type: 
  Country: None (occurrence: None)
  Receive Date: 20120731
  Receipt Date: 20120227
  Transmission Date: 20120928
  Serious: No
  Sender: FDA-Public Use
  Company Number: US-ASTRAZENECA-2011SE11008

PATIENT
  Age: 36 Year
  Sex: Female
  Weight: 108.9 kg

DRUGS (5)
  1. SEROQUEL XR [Suspect]
     Indication: BIPOLAR I DISORDER
     Route: 048
  2. LITHIUM CARBONATE [Concomitant]
     Indication: BORDERLINE PERSONALITY DISORDER
  3. PROZAC [Concomitant]
     Indication: BORDERLINE PERSONALITY DISORDER
  4. SEROQUEL XR [Suspect]
     Indication: BORDERLINE PERSONALITY DISORDER
     Route: 048
  5. OTHER MEDICATIONS [Suspect]
     Route: 065

REACTIONS (9)
  - ACTIVITIES OF DAILY LIVING IMPAIRED [None]
  - CHILLS [None]
  - DRUG WITHDRAWAL SYNDROME [None]
  - FEELING COLD [None]
  - TREMOR [None]
  - INSOMNIA [None]
  - MALAISE [None]
  - PAIN [None]
  - DRUG DOSE OMISSION [None]
